FAERS Safety Report 8005504-0 (Version None)
Quarter: 2011Q4

REPORT INFORMATION
  Report Type: 
  Country: None (occurrence: None)
  Receive Date: 20111223
  Receipt Date: 20111213
  Transmission Date: 20120403
  Serious: Yes (Other)
  Sender: FDA-Public Use
  Company Number: CA-JNJFOC-20111208162

PATIENT
  Sex: Male
  Weight: 140 kg

DRUGS (6)
  1. FOLIC ACID [Concomitant]
     Route: 065
  2. ACETYLSALIC ACID [Concomitant]
     Route: 065
  3. ALTACE [Concomitant]
     Route: 065
  4. METHOTREXATE [Concomitant]
     Route: 048
  5. NEXIUM [Concomitant]
     Route: 065
  6. REMICADE [Suspect]
     Indication: ANKYLOSING SPONDYLITIS
     Dosage: SINCE 10 YEARS
     Route: 042

REACTIONS (1)
  - CROHN'S DISEASE [None]
